FAERS Safety Report 4855476-2 (Version None)
Quarter: 2005Q4

REPORT INFORMATION
  Report Type: 
  Country: None (occurrence: None)
  Receive Date: 20051216
  Receipt Date: 20051208
  Transmission Date: 20060501
  Serious: Yes (Hospitalization)
  Sender: FDA-Public Use
  Company Number: CH-BOEHRINGER INGELHEIM PHARMACEUTICALS, INC.-2005-DE-05405SI

PATIENT
  Age: 82 Year
  Sex: Female

DRUGS (11)
  1. PRADIF [Suspect]
     Route: 048
     Dates: start: 20050919, end: 20050919
  2. COAPROVEL FORTE [Suspect]
     Dosage: STRENGTH AND DAILY DOSE: 300/12,5MG
     Route: 048
     Dates: end: 20050919
  3. RYTHMOL [Concomitant]
     Route: 048
  4. DEROXAT [Concomitant]
     Route: 048
  5. MADOPAR [Concomitant]
     Route: 048
  6. CALCIMAGON [Concomitant]
  7. FEMARA [Concomitant]
     Route: 048
  8. TRANSIPEG [Concomitant]
     Route: 048
  9. FOSAMAX [Concomitant]
     Route: 048
  10. SINTROM [Concomitant]
     Route: 048
  11. COAPROVEL [Concomitant]
     Route: 048

REACTIONS (3)
  - HYPOTENSION [None]
  - MEDICATION ERROR [None]
  - SYNCOPE [None]
